FAERS Safety Report 25812574 (Version 1)
Quarter: 2025Q3

REPORT INFORMATION
  Report Type: Report from Study
  Country: CA (occurrence: CA)
  Receive Date: 20250917
  Receipt Date: 20250917
  Transmission Date: 20251020
  Serious: Yes (Hospitalization, Other)
  Sender: SAMSUNG BIOEPIS
  Company Number: CA-SAMSUNG BIOEPIS-SB-2025-28931

PATIENT
  Age: 69 Year
  Sex: Male

DRUGS (2)
  1. RENFLEXIS [Suspect]
     Active Substance: INFLIXIMAB-ABDA
     Indication: Crohn^s disease
     Dosage: INDUCTION WEEKS 2 AND 6; (5MG/KG)
     Route: 042
     Dates: start: 20250718
  2. RENFLEXIS [Suspect]
     Active Substance: INFLIXIMAB-ABDA
     Indication: Enteritis
     Dosage: INDUCTION WEEKS 0, 2 AND 6; SHE STATED HE RECEIVED UNKNOWINGLY A DOSE ON 22-AUG-2025
     Route: 042
     Dates: start: 20250726

REACTIONS (6)
  - Diarrhoea [Unknown]
  - Oropharyngeal pain [Unknown]
  - Pharyngeal erythema [Unknown]
  - Inappropriate schedule of product administration [Unknown]
  - Memory impairment [Unknown]
  - Off label use [Unknown]

NARRATIVE: CASE EVENT DATE: 20250901
